FAERS Safety Report 11762651 (Version 1)
Quarter: 2015Q4

REPORT INFORMATION
  Report Type: Spontaneous
  Country: AT (occurrence: AT)
  Receive Date: 20151120
  Receipt Date: 20151120
  Transmission Date: 20160304
  Serious: Yes (Life-Threatening, Hospitalization)
  Sender: FDA-Public Use
  Company Number: AT-ASTRAZENECA-2015SF12997

PATIENT
  Sex: Male

DRUGS (24)
  1. TEMESTA [Suspect]
     Active Substance: LORAZEPAM
     Route: 065
     Dates: start: 20151010
  2. ZYPREXA [Suspect]
     Active Substance: OLANZAPINE
     Indication: RESTLESSNESS
     Dosage: ONCE DAILY AT CONSITION OF TENSION AND UNEASE
     Route: 065
     Dates: start: 20150403
  3. NITROLINGUAL [Concomitant]
     Active Substance: NITROGLYCERIN
     Dosage: 2HB. RR MORE THAN 170, 3 HB MORE THAN 190
     Dates: start: 20141121
  4. NOVALGIN [Concomitant]
     Active Substance: METAMIZOLE SODIUM
     Indication: PAIN
     Dosage: IN CASE OF PAIN 3 TIMES DAILY 30 PPT
     Dates: start: 20141204
  5. DAKTARIN [Concomitant]
     Active Substance: MICONAZOLE NITRATE
     Dosage: THREE TIMES DAILY MOUTH CAVITY
     Dates: start: 20141002
  6. SORTIS [Concomitant]
     Active Substance: ATORVASTATIN
     Dates: start: 20141205
  7. MEXALEN [Concomitant]
     Active Substance: ACETAMINOPHEN
     Indication: BACK PAIN
     Dosage: IN CASE OF BACK PAIN
     Dates: start: 20151028
  8. SAROTEN [Suspect]
     Active Substance: AMITRIPTYLINE
     Route: 065
     Dates: start: 20141204
  9. THERMORHEUMON [Concomitant]
     Dates: start: 20151022
  10. SPASMOLYT [Concomitant]
     Dates: start: 20151029
  11. VENLAFAXINE HYDROCHLORIDE. [Suspect]
     Active Substance: VENLAFAXINE HYDROCHLORIDE
     Route: 065
     Dates: start: 20150127
  12. AMLODIPINE [Concomitant]
     Active Substance: AMLODIPINE BESYLATE
     Dates: start: 20141211
  13. SIRDALUD [Concomitant]
     Active Substance: TIZANIDINE
     Indication: SPINAL PAIN
     Dosage: ONE DAILY IN CASE OF PAIN PF CERVICAL SPINE
     Dates: start: 20150403
  14. TAMSULOSIN HYDROCHLORIDE. [Concomitant]
     Active Substance: TAMSULOSIN HYDROCHLORIDE
     Dosage: PHARMA RET- KPS, 1 DF DAILY
     Dates: start: 20150429
  15. MIRTABENE [Suspect]
     Active Substance: MIRTAZAPINE
     Route: 065
     Dates: start: 20150127
  16. ZYPREXA [Suspect]
     Active Substance: OLANZAPINE
     Indication: TENSION
     Dosage: ONCE DAILY AT CONSITION OF TENSION AND UNEASE
     Route: 065
     Dates: start: 20150403
  17. PANTOPRAZOLE [Concomitant]
     Active Substance: PANTOPRAZOLE SODIUM
     Dates: start: 20141205
  18. CANDIO HERMAL [Concomitant]
     Dosage: 2X1 ELABIAL ANPLE
     Dates: start: 20141002
  19. TRAMADOL HYDROCHLORIDE. [Concomitant]
     Active Substance: TRAMADOL HYDROCHLORIDE
     Dates: start: 20151029
  20. SEROQUEL [Suspect]
     Active Substance: QUETIAPINE FUMARATE
     Route: 048
     Dates: start: 20141211
  21. MOVICOL [Concomitant]
     Active Substance: POLYETHYLENE GLYCOL 3350\POTASSIUM CHLORIDE\SODIUM BICARBONATE\SODIUM CHLORIDE
     Route: 065
     Dates: start: 20140822
  22. THROMBO ASS [Concomitant]
     Active Substance: ASPIRIN
     Route: 065
     Dates: start: 20140822
  23. RISPERDAL [Suspect]
     Active Substance: RISPERIDONE
     Dosage: 1 DF 1 TIMES IN 2 DAYS,
     Route: 065
     Dates: start: 20150127
  24. HYDROCHLOROTHIAZIDE, LISINOPRIL [Concomitant]
     Active Substance: HYDROCHLOROTHIAZIDE\LISINOPRIL
     Dosage: LISLNOPRIL + HIDROCLOROTIAZID 20/25, 0.5 DF, DAILY
     Dates: start: 20141205

REACTIONS (3)
  - Cold sweat [Not Recovered/Not Resolved]
  - Hyponatraemia [Not Recovered/Not Resolved]
  - Epilepsy [Not Recovered/Not Resolved]

NARRATIVE: CASE EVENT DATE: 20151029
